FAERS Safety Report 21230252 (Version 2)
Quarter: 2022Q3

REPORT INFORMATION
  Report Type: Report from Study
  Country: DE (occurrence: DE)
  Receive Date: 20220818
  Receipt Date: 20220818
  Transmission Date: 20221027
  Serious: Yes (Hospitalization)
  Sender: FDA-Public Use
  Company Number: DE-IMMUNOCORE-IMM-2016-000995

PATIENT

DRUGS (26)
  1. TEBENTAFUSP [Suspect]
     Active Substance: TEBENTAFUSP
     Indication: Malignant melanoma
     Dosage: 20 MICROGRAM, ONE TIME DOSE
     Route: 042
     Dates: start: 20161220, end: 20161220
  2. TEBENTAFUSP [Suspect]
     Active Substance: TEBENTAFUSP
     Dosage: 30 MICROGRAM, ONE TIME DOSE
     Route: 042
     Dates: start: 20161227, end: 20161227
  3. TEBENTAFUSP [Suspect]
     Active Substance: TEBENTAFUSP
     Dosage: 40 MICROGRAM, ONE TIME DOSE
     Route: 042
     Dates: start: 20170103, end: 20170103
  4. TEBENTAFUSP [Suspect]
     Active Substance: TEBENTAFUSP
     Dosage: 40 MICROGRAM, ONE TIME DOSE
     Route: 042
     Dates: start: 20170110, end: 20170110
  5. TEBENTAFUSP [Suspect]
     Active Substance: TEBENTAFUSP
     Dosage: 40 MICROGRAM, ONE TIME DOSE
     Route: 042
     Dates: start: 20170117, end: 20170117
  6. TEBENTAFUSP [Suspect]
     Active Substance: TEBENTAFUSP
     Dosage: 40 MICROGRAM, ONE TIME DOSE
     Route: 042
     Dates: start: 20170131, end: 20170131
  7. TEBENTAFUSP [Suspect]
     Active Substance: TEBENTAFUSP
     Dosage: 40 MICROGRAM, ONE TIME DOSE
     Route: 042
     Dates: start: 20170207, end: 20170207
  8. TEBENTAFUSP [Suspect]
     Active Substance: TEBENTAFUSP
     Dosage: 40 MICROGRAM, ONE TIME DOSE
     Route: 042
     Dates: start: 20170214, end: 20170214
  9. TEBENTAFUSP [Suspect]
     Active Substance: TEBENTAFUSP
     Dosage: 40 MICROGRAM, ONE TIME DOSE
     Route: 042
     Dates: start: 20170221, end: 20170221
  10. TEBENTAFUSP [Suspect]
     Active Substance: TEBENTAFUSP
     Dosage: 40 MICROGRAM, ONE TIME DOSE
     Route: 042
     Dates: start: 20170228, end: 20170228
  11. TEBENTAFUSP [Suspect]
     Active Substance: TEBENTAFUSP
     Dosage: 40 MICROGRAM, ONE TIME DOSE
     Route: 042
     Dates: start: 20170307, end: 20170307
  12. TEBENTAFUSP [Suspect]
     Active Substance: TEBENTAFUSP
     Dosage: 40 MICROGRAM, ONE TIME DOSE
     Route: 042
     Dates: start: 20170314, end: 20170314
  13. DURVALUMAB [Suspect]
     Active Substance: DURVALUMAB
     Indication: Malignant melanoma
     Dosage: 3 MILLIGRAM/KILOGRAM, ONE TIME DOSE
     Route: 042
     Dates: start: 20170103, end: 20170103
  14. DURVALUMAB [Suspect]
     Active Substance: DURVALUMAB
     Dosage: 3 MILLIGRAM/KILOGRAM, ONE TIME DOSE
     Route: 042
     Dates: start: 20170131, end: 20170131
  15. DURVALUMAB [Suspect]
     Active Substance: DURVALUMAB
     Dosage: 3 MILLIGRAM/KILOGRAM, ONE TIME DOSE
     Route: 042
     Dates: start: 20170228, end: 20170228
  16. PANTOPRAZOLE [Concomitant]
     Active Substance: PANTOPRAZOLE
     Indication: Gastrooesophageal reflux disease
     Dosage: 40 MG, QD
     Route: 048
     Dates: start: 2013
  17. LANTUS [Concomitant]
     Active Substance: INSULIN GLARGINE
     Indication: Diabetes mellitus
     Dosage: UNK
     Route: 058
     Dates: start: 2014
  18. HUMALOG [Concomitant]
     Active Substance: INSULIN LISPRO
     Indication: Diabetes mellitus
     Dosage: UNK
     Route: 058
     Dates: start: 2014
  19. METOPROLOL SUCCINATE [Concomitant]
     Active Substance: METOPROLOL SUCCINATE
     Indication: Hypertension
     Dosage: 47.5 MG, QD
     Route: 048
     Dates: start: 2010, end: 20161226
  20. LEVOTHYROXINE SODIUM [Concomitant]
     Active Substance: LEVOTHYROXINE SODIUM
     Indication: Hypothyroidism
     Dosage: 50 ?G, QD
     Route: 048
     Dates: start: 2006
  21. DIMETHINDENE [Concomitant]
     Active Substance: DIMETHINDENE
     Indication: Rash
     Dosage: 4.0 MG, QD
     Route: 042
     Dates: start: 20161220, end: 20161220
  22. DIMETHINDENE [Concomitant]
     Active Substance: DIMETHINDENE
     Dosage: UNK, PRN
     Route: 048
     Dates: start: 20161221, end: 20161224
  23. RANITIDINE [Concomitant]
     Active Substance: RANITIDINE
     Indication: Rash
     Dosage: 50 MG, QD
     Route: 042
     Dates: start: 20161220, end: 20161220
  24. PREDNISOLONE SODIUM SUCCINATE [Concomitant]
     Active Substance: PREDNISOLONE SODIUM SUCCINATE
     Indication: Rash
     Dosage: 250 MG, QD
     Route: 042
     Dates: start: 20161220, end: 20161220
  25. DERMATOP [Concomitant]
     Active Substance: PREDNICARBATE
     Indication: Rash
     Dosage: UNK UNK, BID
     Route: 061
     Dates: start: 20161221, end: 20161224
  26. FICORTRIL [Concomitant]
     Indication: Rash
     Dosage: UNK UNK, BID
     Route: 061
     Dates: start: 20161221, end: 20161224

REACTIONS (2)
  - Drug eruption [Recovered/Resolved]
  - Drug eruption [Recovered/Resolved]

NARRATIVE: CASE EVENT DATE: 20161227
